FAERS Safety Report 6803616-8 (Version None)
Quarter: 2010Q2

REPORT INFORMATION
  Report Type: 
  Country: None (occurrence: None)
  Receive Date: 20100628
  Receipt Date: 20100607
  Transmission Date: 20101027
  Serious: Yes (Other)
  Sender: FDA-Public Use
  Company Number: MY-SOLVAY-00210003980

PATIENT
  Age: 67 Year
  Sex: Female

DRUGS (2)
  1. TICLOPIDINE HCL [Suspect]
     Indication: MYOCARDIAL ISCHAEMIA
     Dosage: DAILY DOSE: 500 MILLIGRAM(S)
     Route: 048
  2. COVERSYL 4 MG TABLET [Suspect]
     Indication: HYPERTENSION
     Dosage: DAILY DOSE: 4 MILLIGRAM(S)
     Route: 048

REACTIONS (1)
  - ERYTHEMA MULTIFORME [None]
